FAERS Safety Report 6108330-2 (Version None)
Quarter: 2009Q1

REPORT INFORMATION
  Report Type: 
  Country: None (occurrence: None)
  Receive Date: 20090309
  Receipt Date: 20090227
  Transmission Date: 20090719
  Serious: Yes (Other)
  Sender: FDA-Public Use
  Company Number: US-AMGEN-QUU336146

PATIENT
  Sex: Female

DRUGS (1)
  1. ENBREL [Suspect]
     Indication: RHEUMATOID ARTHRITIS
     Route: 058
     Dates: start: 19981101

REACTIONS (6)
  - FIBROMYALGIA [None]
  - FINGER DEFORMITY [None]
  - HYPOAESTHESIA [None]
  - INJECTION SITE INDURATION [None]
  - OROPHARYNGEAL PAIN [None]
  - RASH PRURITIC [None]
